FAERS Safety Report 23425900 (Version 2)
Quarter: 2025Q1

REPORT INFORMATION
  Report Type: Spontaneous
  Country: US (occurrence: US)
  Receive Date: 20240122
  Receipt Date: 20250317
  Transmission Date: 20250408
  Serious: Yes (Hospitalization, Other)
  Sender: DR REDDYS
  Company Number: US-DRL-USA-LIT/USA/24/0001003

PATIENT
  Age: 49 Year
  Sex: Female

DRUGS (2)
  1. PANTOPRAZOLE [Suspect]
     Active Substance: PANTOPRAZOLE
     Indication: Infectious mononucleosis
  2. SUCRALFATE [Suspect]
     Active Substance: SUCRALFATE
     Indication: Infectious mononucleosis

REACTIONS (3)
  - Wernicke^s encephalopathy [Recovering/Resolving]
  - Vitamin B1 deficiency [Recovering/Resolving]
  - Malabsorption [Recovering/Resolving]
